FAERS Safety Report 4617907-2 (Version None)
Quarter: 2005Q1

REPORT INFORMATION
  Report Type: 
  Country: None (occurrence: None)
  Receive Date: 20050324
  Receipt Date: 20050124
  Transmission Date: 20050727
  Serious: Yes (Death)
  Sender: FDA-Public Use
  Company Number: JP-BRISTOL-MYERS SQUIBB COMPANY-12836649

PATIENT
  Age: 80 Year
  Sex: Male

DRUGS (2)
  1. MAXIPIME [Suspect]
     Indication: WHITE BLOOD CELL COUNT DECREASED
     Route: 042
     Dates: start: 20050116
  2. MAXIPIME [Suspect]
     Indication: PYREXIA
     Route: 042
     Dates: start: 20050116

REACTIONS (1)
  - RENAL FAILURE [None]
